FAERS Safety Report 19463832 (Version 1)
Quarter: 2021Q2

REPORT INFORMATION
  Report Type: Spontaneous
  Country: US (occurrence: US)
  Receive Date: 20210625
  Receipt Date: 20210625
  Transmission Date: 20210717
  Serious: Yes (Other)
  Sender: FDA-Public Use
  Company Number: US-INTERNATIONAL MEDICATION SYSTEMS, LIMITED-2113141

PATIENT
  Age: 57 Year
  Sex: Male
  Weight: 92 kg

DRUGS (2)
  1. LIDOCAINE HYDROCHLORIDE. [Suspect]
     Active Substance: LIDOCAINE HYDROCHLORIDE
     Indication: TRACHEAL DISORDER
     Route: 061
     Dates: start: 20210610, end: 20210610
  2. LIDOCAINE HYDROCHLORIDE. [Suspect]
     Active Substance: LIDOCAINE HYDROCHLORIDE
     Indication: THROAT IRRITATION
     Route: 061
     Dates: start: 20210610, end: 20210610

REACTIONS (2)
  - Foreign body in gastrointestinal tract [Unknown]
  - Removal of foreign body from oesophagus [Unknown]

NARRATIVE: CASE EVENT DATE: 20210610
